FAERS Safety Report 25970707 (Version 1)
Quarter: 2025Q4

REPORT INFORMATION
  Report Type: Spontaneous
  Country: US (occurrence: US)
  Receive Date: 20251028
  Receipt Date: 20251028
  Transmission Date: 20260118
  Serious: Yes (Hospitalization, Other)
  Sender: NOVO NORDISK
  Company Number: US-NOVOPROD-1544934

PATIENT
  Age: 69 Year
  Sex: Female

DRUGS (3)
  1. NOVOLIN N [Suspect]
     Active Substance: INSULIN HUMAN
     Indication: Type 1 diabetes mellitus
     Dosage: 63 IU (9 IU, IN THE MORNING AND 54 IU AT THE EVENING)
     Route: 058
     Dates: start: 201911
  2. NOVOLIN R [Suspect]
     Active Substance: INSULIN HUMAN
     Indication: Type 1 diabetes mellitus
     Dosage: UNK
     Route: 058
  3. HUMALOG [Concomitant]
     Active Substance: INSULIN LISPRO
     Indication: Type 1 diabetes mellitus
     Dosage: UNK

REACTIONS (7)
  - Myocardial infarction [Unknown]
  - Myocardial infarction [Unknown]
  - Pneumothorax [Unknown]
  - Cardiac failure congestive [Unknown]
  - Immunodeficiency [Unknown]
  - Arterial stenosis [Unknown]
  - Depression [Unknown]

NARRATIVE: CASE EVENT DATE: 20191126
